FAERS Safety Report 19444111 (Version 1)
Quarter: 2021Q2

REPORT INFORMATION
  Report Type: Spontaneous
  Country: ES (occurrence: ES)
  Receive Date: 20210621
  Receipt Date: 20210621
  Transmission Date: 20210717
  Serious: Yes (Other)
  Sender: FDA-Public Use
  Company Number: ES-GLAXOSMITHKLINE-ES2021EME129682

PATIENT
  Age: 59 Year
  Sex: Male

DRUGS (1)
  1. BLENREP [Suspect]
     Active Substance: BELANTAMAB MAFODOTIN-BLMF
     Indication: MONOCLONAL ANTIBODY CHEMOIMMUNOCONJUGATE THERAPY
     Dosage: UNK
     Dates: start: 202005

REACTIONS (3)
  - Cytopenia [Unknown]
  - Pyrexia [Unknown]
  - Apoptosis [Unknown]

NARRATIVE: CASE EVENT DATE: 202005
